FAERS Safety Report 5163211-6 (Version None)
Quarter: 2006Q4

REPORT INFORMATION
  Report Type: 
  Country: None (occurrence: None)
  Receive Date: 20061121
  Receipt Date: 20061107
  Transmission Date: 20070319
  Serious: Yes (Hospitalization)
  Sender: FDA-Public Use
  Company Number: 2006002125

PATIENT
  Age: 68 Year
  Sex: Female
  Weight: 60 kg

DRUGS (10)
  1. ERLOTINIB (TABLET)  (ERLOTINIB HCL) [Suspect]
     Indication: NON-SMALL CELL LUNG CANCER
     Dosage: 1500 MG QD ORAL
     Route: 048
     Dates: start: 20061012
  2. PACLITAXEL [Suspect]
     Indication: NON-SMALL CELL LUNG CANCER
     Dosage: 370 MG INTRAVENOUS
     Route: 042
     Dates: start: 20061011
  3. CARBOPLATIN [Suspect]
     Indication: NON-SMALL CELL LUNG CANCER
     Dosage: 490 MG, AUC, INTRAVENOUS
     Route: 042
     Dates: start: 20061011
  4. ACETAMINOPHEN [Concomitant]
  5. ZETIA [Concomitant]
  6. ATIVAN [Concomitant]
  7. ASCORBIC ACID [Concomitant]
  8. FOLIC ACID [Concomitant]
  9. LOVENOX [Concomitant]
  10. AMBIEN [Concomitant]

REACTIONS (2)
  - CONFUSIONAL STATE [None]
  - DISORIENTATION [None]
